FAERS Safety Report 16307015 (Version 2)
Quarter: 2020Q2

REPORT INFORMATION
  Report Type: Report from Study
  Country: CA (occurrence: CA)
  Receive Date: 20190513
  Receipt Date: 20200624
  Transmission Date: 20200713
  Serious: Yes (Other)
  Sender: FDA-Public Use
  Company Number: CA-JNJFOC-20190426543

PATIENT
  Sex: Male

DRUGS (1)
  1. SIMPONI [Suspect]
     Active Substance: GOLIMUMAB
     Indication: COLITIS ULCERATIVE
     Route: 058

REACTIONS (2)
  - Frequent bowel movements [Not Recovered/Not Resolved]
  - Gastric infection [Unknown]
